FAERS Safety Report 12531498 (Version 2)
Quarter: 2016Q3

REPORT INFORMATION
  Report Type: Spontaneous
  Country: SA (occurrence: SA)
  Receive Date: 20160706
  Receipt Date: 20160721
  Transmission Date: 20161109
  Serious: Yes (Death, Hospitalization)
  Sender: FDA-Public Use
  Company Number: SA-BIOMARINAP-SA-2016-110338

PATIENT
  Age: 7 Year
  Sex: Male
  Weight: 13.5 kg

DRUGS (1)
  1. NAGLAZYME [Suspect]
     Active Substance: GALSULFASE
     Indication: MUCOPOLYSACCHARIDOSIS VI
     Dosage: 15 MG, UNK
     Route: 042
     Dates: start: 20121205

REACTIONS (6)
  - Hypoxia [Unknown]
  - Cyanosis [Unknown]
  - Death [Fatal]
  - Oxygen saturation decreased [Unknown]
  - Respiratory depression [Unknown]
  - Pyrexia [Unknown]

NARRATIVE: CASE EVENT DATE: 20160630
